APPROVED DRUG PRODUCT: SODIUM CHLORIDE 0.9% IN PLASTIC CONTAINER
Active Ingredient: SODIUM CHLORIDE
Strength: 900MG/100ML
Dosage Form/Route: INJECTABLE;INJECTION
Application: A076316 | Product #001 | TE Code: AP
Applicant: GVS TM INC
Approved: Oct 27, 2004 | RLD: No | RS: No | Type: RX